FAERS Safety Report 10377314 (Version 1)
Quarter: 2014Q3

REPORT INFORMATION
  Report Type: Spontaneous
  Country: US (occurrence: US)
  Receive Date: 20140812
  Receipt Date: 20140812
  Transmission Date: 20150326
  Serious: Yes (Hospitalization, Other)
  Sender: FDA-Public Use
  Company Number: PHHY2014US095872

PATIENT
  Age: 66 Year
  Sex: Male
  Weight: 112 kg

DRUGS (6)
  1. LISINOPRIL. [Suspect]
     Active Substance: LISINOPRIL
     Dosage: 40 MG, DAILY
     Route: 048
  2. ASPIRIN. [Concomitant]
     Active Substance: ASPIRIN
     Dosage: 81 MG, DAILY
     Route: 048
  3. ALTEPLASE [Suspect]
     Active Substance: ALTEPLASE
     Dosage: 9 MG, UNK
     Route: 040
  4. ALTEPLASE [Suspect]
     Active Substance: ALTEPLASE
     Dosage: 81 MG, UNK
     Route: 042
  5. SPIRONOLACTONE. [Concomitant]
     Active Substance: SPIRONOLACTONE
     Dosage: 25 MG, BID
     Route: 048
  6. AMLODIPINE [Concomitant]
     Active Substance: AMLODIPINE BESYLATE
     Dosage: 10 MG DAILY
     Route: 048

REACTIONS (3)
  - Drug interaction [Unknown]
  - Angioedema [Recovered/Resolved]
  - Lip swelling [Unknown]
